FAERS Safety Report 21835343 (Version 1)
Quarter: 2023Q1

REPORT INFORMATION
  Report Type: Other
  Country: US (occurrence: None)
  Receive Date: 20230109
  Receipt Date: 20230109
  Transmission Date: 20230417
  Serious: Yes (Other)
  Sender: FDA-Public Use
  Company Number: US-ROCHE-3257845

PATIENT
  Age: 49 Year
  Sex: Female

DRUGS (1)
  1. RITUXAN [Suspect]
     Active Substance: RITUXIMAB
     Indication: Diffuse large B-cell lymphoma stage IV
     Dosage: INFUSE 848 MG INTRAVENOUSLY EVERY 21 DAYS
     Route: 042

REACTIONS (1)
  - Neoplasm malignant [Unknown]
